FAERS Safety Report 6300193-5 (Version None)
Quarter: 2009Q3

REPORT INFORMATION
  Report Type: 
  Country: None (occurrence: None)
  Receive Date: 20090804
  Receipt Date: 20090723
  Transmission Date: 20100115
  Serious: Yes (Other)
  Sender: FDA-Public Use
  Company Number: 2009SP016490

PATIENT
  Sex: Female

DRUGS (2)
  1. PEG-INTRON [Suspect]
     Indication: HEPATITIS C
     Dates: start: 20080407, end: 20090302
  2. RIBAVIRIN [Suspect]
     Indication: HEPATITIS C
     Dates: start: 20080407, end: 20090302

REACTIONS (2)
  - ANAEMIA [None]
  - THYROIDITIS [None]
